FAERS Safety Report 5629941-4 (Version None)
Quarter: 2008Q1

REPORT INFORMATION
  Report Type: 
  Country: None (occurrence: None)
  Receive Date: 20080213
  Receipt Date: 20080129
  Transmission Date: 20080703
  Serious: Yes (Hospitalization)
  Sender: FDA-Public Use
  Company Number: DSM-2008-00148

PATIENT
  Age: 77 Year
  Sex: Male

DRUGS (3)
  1. OLMETEC (OLMESARTAN MEDOXOMIL) (40 MILLIGRAM, TABLET) (OLMESARTAN MEDO [Suspect]
     Indication: MYOCARDIAL ISCHAEMIA
     Dosage: 40 MG (40 MG, 1 IN 1 D), ORAL
     Route: 048
     Dates: start: 20070426, end: 20070804
  2. COROPRES (CARVEDILOL) (25 MILLIGRAM, TABLET) (CARVEDILOL) [Suspect]
     Indication: MYOCARDIAL ISCHAEMIA
     Dosage: 25 MG (25 MG, 1 IN 1 D), ORAL
     Route: 048
     Dates: start: 20070426, end: 20070804
  3. SALIDUR (TRIAMTERENE, FUROSEMIDE XANTINOL) (TABLET) (TRIAMTERENE FUROS [Concomitant]

REACTIONS (2)
  - ATRIOVENTRICULAR BLOCK [None]
  - BRADYARRHYTHMIA [None]
